FAERS Safety Report 8376040-7 (Version None)
Quarter: 2012Q2

REPORT INFORMATION
  Report Type: 
  Country: None (occurrence: None)
  Receive Date: 20120522
  Receipt Date: 20120514
  Transmission Date: 20120825
  Serious: Yes (Hospitalization)
  Sender: FDA-Public Use
  Company Number: PHHY2012AT042042

PATIENT
  Age: 43 Year
  Sex: Male

DRUGS (3)
  1. TEGRETOL [Suspect]
     Dosage: 300 MG DAILY
     Dates: start: 20100801, end: 20111108
  2. LITHIUM CARBONATE [Suspect]
     Dosage: 950 MG DAILY
     Dates: start: 20090101
  3. NOZINAN [Suspect]
     Dosage: 150 DAILY
     Dates: start: 20100101, end: 20111108

REACTIONS (4)
  - MUSCULOSKELETAL STIFFNESS [None]
  - GAIT DISTURBANCE [None]
  - CHILLS [None]
  - PARKINSONISM [None]
